FAERS Safety Report 16135010 (Version 2)
Quarter: 2019Q2

REPORT INFORMATION
  Report Type: Spontaneous
  Country: US (occurrence: US)
  Receive Date: 20190329
  Receipt Date: 20190626
  Transmission Date: 20190711
  Serious: Yes (Hospitalization, Other)
  Sender: FDA-Public Use
  Company Number: US-PFIZER INC-2019130322

PATIENT
  Age: 80 Year
  Sex: Female

DRUGS (3)
  1. DIOVAN [Interacting]
     Active Substance: VALSARTAN
     Indication: HYPERTENSION
     Dosage: 80 MG, 1X/DAY
     Route: 048
     Dates: start: 1978, end: 20180213
  2. COREG [Interacting]
     Active Substance: CARVEDILOL
     Indication: ATRIAL FIBRILLATION
     Dosage: 3.25 MG, 2X/DAY
     Route: 048
     Dates: start: 2013
  3. CELEBREX [Suspect]
     Active Substance: CELECOXIB
     Indication: OSTEOARTHRITIS
     Dosage: 200 MG, 1X/DAY
     Route: 048
     Dates: start: 1978

REACTIONS (7)
  - Cerebrovascular accident [Recovered/Resolved with Sequelae]
  - Weight decreased [Not Recovered/Not Resolved]
  - Speech disorder [Recovering/Resolving]
  - Fatigue [Not Recovered/Not Resolved]
  - Blood pressure decreased [Recovered/Resolved]
  - Confusional state [Not Recovered/Not Resolved]
  - Drug interaction [Recovered/Resolved with Sequelae]

NARRATIVE: CASE EVENT DATE: 20180212
